FAERS Safety Report 10351771 (Version 1)
Quarter: 2014Q3

REPORT INFORMATION
  Report Type: Spontaneous
  Country: SE (occurrence: SE)
  Receive Date: 20140730
  Receipt Date: 20140730
  Transmission Date: 20150326
  Serious: Yes (Hospitalization)
  Sender: FDA-Public Use
  Company Number: SE-ELI_LILLY_AND_COMPANY-SE201407007407

PATIENT
  Age: 78 Year
  Sex: Female

DRUGS (9)
  1. MINDIAB [Concomitant]
     Active Substance: GLIPIZIDE
     Dosage: UNK
     Dates: start: 20120730
  2. LEVAXIN [Concomitant]
     Active Substance: LEVOTHYROXINE SODIUM
     Dosage: UNK
     Dates: start: 20130318
  3. OMEPRAZOLE. [Concomitant]
     Active Substance: OMEPRAZOLE
     Dosage: UNK
     Dates: start: 20140707
  4. STESOLID [Concomitant]
     Active Substance: DIAZEPAM
     Dosage: UNK
     Dates: start: 20140605
  5. STILNOCT [Concomitant]
     Active Substance: ZOLPIDEM TARTRATE
     Dosage: UNK
     Dates: start: 20130316
  6. ACETILCISTEINA [Concomitant]
     Active Substance: ACETYLCYSTEINE
     Dosage: UNK
     Dates: start: 20140323
  7. ZYPADHERA [Suspect]
     Active Substance: OLANZAPINE PAMOATE
     Indication: PSYCHOTIC DISORDER
     Dosage: 1 ML, UNK
     Route: 030
     Dates: start: 20130403, end: 20140709
  8. ALVEDON [Concomitant]
     Active Substance: ACETAMINOPHEN
     Dosage: UNK
     Dates: start: 20140701
  9. OCULAC                             /01727601/ [Concomitant]
     Dosage: UNK
     Dates: start: 20130318

REACTIONS (12)
  - Dizziness [Not Recovered/Not Resolved]
  - Dyskinesia [Unknown]
  - Restlessness [Unknown]
  - Paraesthesia [Not Recovered/Not Resolved]
  - Asthenia [Not Recovered/Not Resolved]
  - Ataxia [Not Recovered/Not Resolved]
  - Fatigue [Not Recovered/Not Resolved]
  - Confusional state [Not Recovered/Not Resolved]
  - Paraesthesia oral [Not Recovered/Not Resolved]
  - Dysarthria [Not Recovered/Not Resolved]
  - Tachycardia [Not Recovered/Not Resolved]
  - Hypertension [Not Recovered/Not Resolved]

NARRATIVE: CASE EVENT DATE: 20140709
